FAERS Safety Report 7712999-6 (Version None)
Quarter: 2011Q3

REPORT INFORMATION
  Report Type: 
  Country: None (occurrence: None)
  Receive Date: 20110826
  Receipt Date: 20110815
  Transmission Date: 20111222
  Serious: Yes (Other)
  Sender: FDA-Public Use
  Company Number: AU-GENENTECH-323343

PATIENT
  Sex: Female

DRUGS (1)
  1. LUCENTIS [Suspect]
     Indication: MACULAR DEGENERATION
     Dosage: 0.05 ML, UNKNOWN
     Route: 031
     Dates: start: 20101001

REACTIONS (4)
  - INFLUENZA [None]
  - HEART RATE IRREGULAR [None]
  - VISION BLURRED [None]
  - MUSCULOSKELETAL PAIN [None]
